FAERS Safety Report 5057320-X (Version None)
Quarter: 2006Q3

REPORT INFORMATION
  Report Type: 
  Country: None (occurrence: None)
  Receive Date: 20060721
  Receipt Date: 20050808
  Transmission Date: 20061208
  Serious: No
  Sender: FDA-Public Use
  Company Number: US-GLAXOSMITHKLINE-A0569231A

PATIENT
  Age: 62 Year
  Sex: Male

DRUGS (9)
  1. AVANDIA [Suspect]
     Dosage: 4MG PER DAY
     Route: 048
     Dates: start: 20050805
  2. LIPITOR [Concomitant]
  3. ZETIA [Concomitant]
  4. METOPROLOL [Concomitant]
  5. ISOSORBIDE [Concomitant]
  6. NIACIN [Concomitant]
  7. NORVASC [Concomitant]
  8. ECOTRIN [Concomitant]
  9. VITAMIN E [Concomitant]

REACTIONS (2)
  - DIZZINESS [None]
  - NAUSEA [None]
